FAERS Safety Report 22683268 (Version 3)
Quarter: 2025Q3

REPORT INFORMATION
  Report Type: Spontaneous
  Country: EU (occurrence: EU)
  Receive Date: 20230707
  Receipt Date: 20250929
  Transmission Date: 20251021
  Serious: Yes (Other)
  Sender: BAUSCH AND LOMB
  Company Number: EU-002147023-NVSC2023ES142759

PATIENT
  Age: 50 Year
  Sex: Male
  Weight: 57 kg

DRUGS (8)
  1. DEXAMETHASONE [Suspect]
     Active Substance: DEXAMETHASONE
     Indication: Product used for unknown indication
     Dosage: 14 MG, Q8H (10 MG PLUS 4MG EVERY 8 HOURS)
     Route: 065
     Dates: start: 20230604
  2. GRANULOCYTE COLONY-STIMULATING FACTOR NOS [Suspect]
     Active Substance: GRANULOCYTE COLONY-STIMULATING FACTOR NOS
     Indication: Pancreatic neuroendocrine tumour
     Route: 042
  3. CISPLATIN [Suspect]
     Active Substance: CISPLATIN
     Indication: Pancreatic neuroendocrine tumour
     Route: 042
  4. ETOPOSIDE [Suspect]
     Active Substance: ETOPOSIDE
     Indication: Pancreatic neuroendocrine tumour
     Route: 042
  5. LUTATHERA [Suspect]
     Active Substance: LUTETIUM OXODOTREOTIDE LU-177
     Indication: Pancreatic neuroendocrine tumour
     Route: 065
  6. LUTATHERA [Suspect]
     Active Substance: LUTETIUM OXODOTREOTIDE LU-177
     Route: 041
     Dates: start: 20220707, end: 20230112
  7. MORPHINE [Suspect]
     Active Substance: MORPHINE
     Indication: Pancreatic neuroendocrine tumour
     Route: 048
  8. ENOXAPARIN SODIUM [Concomitant]
     Active Substance: ENOXAPARIN SODIUM
     Indication: Anticoagulant therapy
     Route: 065
     Dates: start: 20230604, end: 20230704

REACTIONS (25)
  - Metastases to spine [Unknown]
  - Back pain [Recovering/Resolving]
  - Neurogenic bowel [Not Recovered/Not Resolved]
  - Hypoaesthesia [Unknown]
  - Dysstasia [Not Recovered/Not Resolved]
  - Pancreatic neuroendocrine tumour [Unknown]
  - Hyperreflexia [Unknown]
  - Neurogenic bladder [Not Recovered/Not Resolved]
  - Motor dysfunction [Unknown]
  - Pyramidal tract syndrome [Unknown]
  - Paraplegia [Not Recovered/Not Resolved]
  - Asthenia [Not Recovered/Not Resolved]
  - Spinal pain [Not Recovered/Not Resolved]
  - Condition aggravated [Not Recovered/Not Resolved]
  - Spinal cord compression [Unknown]
  - Clonus [Unknown]
  - Metastases to liver [Recovering/Resolving]
  - Metastases to bone [Unknown]
  - Malignant neoplasm progression [Unknown]
  - Paraesthesia [Not Recovered/Not Resolved]
  - Pain [Unknown]
  - Electric shock sensation [Unknown]
  - Flatulence [Unknown]
  - Musculoskeletal pain [Unknown]
  - Therapeutic product effect incomplete [Unknown]

NARRATIVE: CASE EVENT DATE: 20230604
